FAERS Safety Report 12246114 (Version 1)
Quarter: 2016Q2

REPORT INFORMATION
  Report Type: Spontaneous
  Country: US (occurrence: US)
  Receive Date: 20160407
  Receipt Date: 20160407
  Transmission Date: 20160815
  Serious: No
  Sender: FDA-Public Use
  Company Number: US-009507513-1603USA008561

PATIENT
  Age: 40 Year
  Sex: Male

DRUGS (4)
  1. POSACONAZOLE [Suspect]
     Active Substance: POSACONAZOLE
     Indication: MUCORMYCOSIS
     Dosage: UNK, QD
     Route: 048
  2. PREDNISONE. [Concomitant]
     Active Substance: PREDNISONE
  3. AMBISOME [Concomitant]
     Active Substance: AMPHOTERICIN B
     Dosage: 5MG/KG, DAILY
     Route: 042
  4. PONATINIB [Concomitant]
     Active Substance: PONATINIB

REACTIONS (2)
  - Transaminases increased [Unknown]
  - Off label use [Unknown]
